FAERS Safety Report 7418099-7 (Version None)
Quarter: 2011Q2

REPORT INFORMATION
  Report Type: 
  Country: None (occurrence: None)
  Receive Date: 20110415
  Receipt Date: 20110404
  Transmission Date: 20111010
  Serious: Yes (Other)
  Sender: FDA-Public Use
  Company Number: US-ELI_LILLY_AND_COMPANY-US201010004588

PATIENT
  Sex: Female

DRUGS (10)
  1. FORTEO [Suspect]
     Dosage: 20 UG, QD
  2. FORTEO [Suspect]
     Dosage: 20 UG, QD
  3. BUPROPION HYDROCHLORIDE [Concomitant]
  4. CITALOPRAM [Concomitant]
  5. ARICEPT [Concomitant]
  6. NAMENDA [Concomitant]
  7. AGGRENOX [Concomitant]
  8. COZAAR [Concomitant]
  9. DETROL [Concomitant]
  10. FORTEO [Suspect]
     Indication: OSTEOPOROSIS
     Dosage: 20 UG, DAILY (1/D)
     Dates: start: 20100914

REACTIONS (5)
  - INJECTION SITE MASS [None]
  - BRONCHITIS [None]
  - INJECTION SITE ERYTHEMA [None]
  - LUNG NEOPLASM MALIGNANT [None]
  - COUGH [None]
